FAERS Safety Report 13784191 (Version 1)
Quarter: 2017Q3

REPORT INFORMATION
  Report Type: Spontaneous
  Country: US (occurrence: US)
  Receive Date: 20170724
  Receipt Date: 20170724
  Transmission Date: 20171127
  Serious: No
  Sender: FDA-Public Use
  Company Number: US-ACTELION-A-US2017-157168

PATIENT
  Age: 79 Year
  Sex: Female

DRUGS (2)
  1. TRIAMCINOLON [Concomitant]
  2. VALCHLOR [Suspect]
     Active Substance: MECHLORETHAMINE
     Indication: MYCOSIS FUNGOIDES
     Dosage: UNK
     Route: 061
     Dates: start: 20170318

REACTIONS (3)
  - Burning sensation [Unknown]
  - Paraesthesia [Unknown]
  - Dry skin [Unknown]
